FAERS Safety Report 10016891 (Version 2)
Quarter: 2014Q2

REPORT INFORMATION
  Report Type: Report from Study
  Country: GB (occurrence: US)
  Receive Date: 20140318
  Receipt Date: 20140603
  Transmission Date: 20141212
  Serious: Yes (Other)
  Sender: FDA-Public Use
  Company Number: GB-ROCHE-1365893

PATIENT
  Age: 71 Year
  Sex: Female
  Weight: 59 kg

DRUGS (4)
  1. RANIBIZUMAB [Suspect]
     Indication: PRODUCT USED FOR UNKNOWN INDICATION
     Dosage: LEFT EYE
     Route: 050
     Dates: start: 20111208
  2. RANIBIZUMAB [Suspect]
     Dosage: LEFT EYE, 15TH INJECTION
     Route: 050
     Dates: start: 20130307, end: 20130307
  3. RANIBIZUMAB [Suspect]
     Dosage: LEFT EYE
     Route: 050
     Dates: start: 20130502
  4. AMLODIPINE [Concomitant]

REACTIONS (1)
  - Vitreous detachment [Recovered/Resolved with Sequelae]
